FAERS Safety Report 19108899 (Version 1)
Quarter: 2021Q2

REPORT INFORMATION
  Report Type: Spontaneous
  Country: CN (occurrence: CN)
  Receive Date: 20210408
  Receipt Date: 20210408
  Transmission Date: 20210717
  Serious: Yes (Other)
  Sender: FDA-Public Use
  Company Number: CN-BAYER-2021-115396

PATIENT
  Age: 38 Year
  Sex: Female

DRUGS (10)
  1. CYCLOSPORINE. [Concomitant]
     Active Substance: CYCLOSPORINE
     Indication: DERMATOMYOSITIS
     Dosage: 100 MG, BID
     Route: 048
     Dates: start: 20180316
  2. CYCLOSPORINE. [Concomitant]
     Active Substance: CYCLOSPORINE
     Indication: DERMATOMYOSITIS
     Dosage: 75 MG, QD
     Route: 048
  3. LORATADINE. [Suspect]
     Active Substance: LORATADINE
     Indication: DERMATOMYOSITIS
     Dosage: UNK
     Route: 048
     Dates: start: 2018
  4. METHYLPREDNISOLONE. [Concomitant]
     Active Substance: METHYLPREDNISOLONE
     Indication: DERMATOMYOSITIS
     Dosage: 80 MG, QD
     Route: 048
     Dates: start: 20180316, end: 2019
  5. METHYLPREDNISOLONE. [Concomitant]
     Active Substance: METHYLPREDNISOLONE
     Indication: DERMATOMYOSITIS
     Dosage: 24 MG, QD
     Route: 048
     Dates: start: 20180307, end: 20180309
  6. IMMUNOGLOBULINS NOS [Concomitant]
     Active Substance: IMMUNE GLOBULIN NOS
     Indication: DERMATOMYOSITIS
     Dosage: 20 G, QD
     Route: 042
     Dates: start: 20180320, end: 20180323
  7. METHYLPREDNISOLONE. [Concomitant]
     Active Substance: METHYLPREDNISOLONE
     Indication: DERMATOMYOSITIS
     Dosage: 4 MG, QD
     Route: 048
     Dates: start: 2019
  8. HYDROXYCHLOROQUINE [Concomitant]
     Active Substance: HYDROXYCHLOROQUINE
     Indication: DERMATOMYOSITIS
     Dosage: 400 MG, QD
     Dates: start: 20180307, end: 20180309
  9. OXYGEN. [Concomitant]
     Active Substance: OXYGEN
     Indication: OXYGEN SATURATION DECREASED
     Dosage: UNK
     Route: 055
     Dates: start: 201803
  10. CYCLOPHOSPHAMIDE. [Concomitant]
     Active Substance: CYCLOPHOSPHAMIDE
     Indication: DERMATOMYOSITIS
     Dosage: 400 MG, OW
     Route: 042
     Dates: start: 20180316, end: 201905

REACTIONS (3)
  - Maternal exposure during pregnancy [None]
  - Abortion induced [None]
  - Product use in unapproved indication [None]

NARRATIVE: CASE EVENT DATE: 2018
